FAERS Safety Report 10864995 (Version 1)
Quarter: 2015Q1

REPORT INFORMATION
  Report Type: Report from Study
  Country: FR (occurrence: FR)
  Receive Date: 20150224
  Receipt Date: 20150224
  Transmission Date: 20150721
  Serious: Yes (Hospitalization, Other)
  Sender: FDA-Public Use
  Company Number: FR-ROCHE-1541495

PATIENT
  Sex: Female

DRUGS (9)
  1. RITUXIMAB [Suspect]
     Active Substance: RITUXIMAB
     Dosage: D1 ON 20/MAR/2009  AND (D15) ON 03/APR/2009
     Route: 042
     Dates: start: 20090320
  2. RITUXIMAB [Suspect]
     Active Substance: RITUXIMAB
     Dosage: SINGLE INFUSION
     Route: 042
     Dates: start: 20100211
  3. RITUXIMAB [Suspect]
     Active Substance: RITUXIMAB
     Dosage: SINGLE INFUSION
     Route: 042
     Dates: start: 20120402
  4. RITUXIMAB [Suspect]
     Active Substance: RITUXIMAB
     Indication: RHEUMATOID ARTHRITIS
     Dosage: D1 ON 20/JUN/2008 AND (D15) ON 04/JUL/2008
     Route: 042
     Dates: start: 20080620
  5. RITUXIMAB [Suspect]
     Active Substance: RITUXIMAB
     Dosage: D15 DOSE ON 11/JUL/2011
     Route: 042
     Dates: start: 20110629
  6. METHYLPREDNISOLONE. [Concomitant]
     Active Substance: METHYLPREDNISOLONE
     Route: 065
  7. RITUXIMAB [Suspect]
     Active Substance: RITUXIMAB
     Dosage: SINGLE INFUSION
     Route: 042
     Dates: start: 20130610
  8. PARACETAMOL [Concomitant]
     Active Substance: ACETAMINOPHEN
  9. METHOTREXATE [Concomitant]
     Active Substance: METHOTREXATE
     Route: 065

REACTIONS (3)
  - Superficial spreading melanoma stage unspecified [Unknown]
  - Waldenstrom^s macroglobulinaemia [Unknown]
  - Infusion related reaction [Recovered/Resolved]

NARRATIVE: CASE EVENT DATE: 20090320
